FAERS Safety Report 21037171 (Version 1)
Quarter: 2022Q3

REPORT INFORMATION
  Report Type: Spontaneous
  Country: US (occurrence: US)
  Receive Date: 20220703
  Receipt Date: 20220703
  Transmission Date: 20221027
  Serious: No
  Sender: FDA-Public Use
  Company Number: US-BRISTOL-MYERS SQUIBB COMPANY-2022-062046

PATIENT
  Age: 35 Year
  Sex: Male

DRUGS (2)
  1. REVLIMID [Suspect]
     Active Substance: LENALIDOMIDE
     Indication: Diffuse large B-cell lymphoma
     Dosage: 7 DAYS OFF
     Route: 048
     Dates: start: 20220525
  2. REVLIMID [Suspect]
     Active Substance: LENALIDOMIDE
     Indication: Lymphadenopathy

REACTIONS (2)
  - Rash [Recovered/Resolved]
  - Intentional product use issue [Unknown]
